FAERS Safety Report 11926046 (Version 1)
Quarter: 2016Q1

REPORT INFORMATION
  Report Type: Spontaneous
  Country: US (occurrence: US)
  Receive Date: 20160119
  Receipt Date: 20160119
  Transmission Date: 20160526
  Serious: No
  Sender: FDA-Public Use
  Company Number: US-TEVA-622800ACC

PATIENT
  Sex: Female
  Weight: 83.54 kg

DRUGS (1)
  1. PARAGARD T 380A [Suspect]
     Active Substance: COPPER
     Indication: CONTRACEPTION
     Dates: start: 20130918, end: 20151229

REACTIONS (2)
  - Muscle spasms [Unknown]
  - Menorrhagia [Unknown]
